FAERS Safety Report 8425760 (Version 2)
Quarter: 2013Q1

REPORT INFORMATION
  Report Type: Spontaneous
  Country: FR (occurrence: FR)
  Receive Date: 20120224
  Receipt Date: 20130111
  Transmission Date: 20140127
  Serious: Yes (Hospitalization, Other)
  Sender: FDA-Public Use
  Company Number: FR-ACTELION-A-CH2012-60293

PATIENT
  Age: 48 Year
  Sex: Male
  Weight: 90 kg

DRUGS (9)
  1. TRACLEER [Suspect]
     Indication: PULMONARY ARTERIAL HYPERTENSION
     Dosage: 125 MG, BID
     Route: 048
     Dates: start: 200712, end: 20111215
  2. TRACLEER [Suspect]
     Dosage: 62.5 MG, BID
     Route: 048
     Dates: start: 20071116, end: 200712
  3. REVATIO [Suspect]
     Indication: PRODUCT USED FOR UNKNOWN INDICATION
     Dosage: 20 MG, TID
     Route: 048
     Dates: start: 20110113
  4. PREVISCAN [Concomitant]
  5. ALDALIX [Concomitant]
  6. CRESTOR [Concomitant]
  7. KARDEGIC [Concomitant]
  8. BI TILDIEM [Concomitant]
  9. LEVOTHYROX [Concomitant]

REACTIONS (7)
  - Hepatocellular injury [Recovered/Resolved]
  - Cholestasis [Recovered/Resolved]
  - Transaminases increased [Recovered/Resolved]
  - Aspartate aminotransferase increased [Recovered/Resolved]
  - Alanine aminotransferase increased [Recovered/Resolved]
  - Gamma-glutamyltransferase increased [Recovered/Resolved]
  - Drug interaction [Unknown]
